FAERS Safety Report 8765899 (Version 1)
Quarter: 2012Q4

REPORT INFORMATION
  Report Type: 
  Country: IN (occurrence: IN)
  Receive Date: 20120904
  Receipt Date: 20120904
  Transmission Date: 20130627
  Serious: Yes (Other)
  Sender: FDA-Public Use
  Company Number: PHHY2012IN076120

PATIENT
  Age: 7 Year
  Sex: Male

DRUGS (1)
  1. PREDNISOLONE [Suspect]
     Indication: ANAEMIA HAEMOLYTIC AUTOIMMUNE
     Dosage: 1 mg/kg, QD

REACTIONS (3)
  - Drug dependence [Unknown]
  - Cushing^s syndrome [Unknown]
  - Anaemia haemolytic autoimmune [Unknown]
